FAERS Safety Report 9896510 (Version 1)
Quarter: 2014Q1

REPORT INFORMATION
  Report Type: Spontaneous
  Country: US (occurrence: US)
  Receive Date: 20140213
  Receipt Date: 20140213
  Transmission Date: 20141002
  Serious: No
  Sender: FDA-Public Use
  Company Number: US-BRISTOL-MYERS SQUIBB COMPANY-18848960

PATIENT
  Age: 77 Year
  Sex: Female
  Weight: 58.96 kg

DRUGS (2)
  1. ORENCIA [Suspect]
     Route: 042
  2. PREDNISONE [Concomitant]

REACTIONS (2)
  - Headache [Unknown]
  - Pain in extremity [Unknown]
